FAERS Safety Report 16021154 (Version 3)
Quarter: 2020Q3

REPORT INFORMATION
  Report Type: Report from Study
  Country: IT (occurrence: IT)
  Receive Date: 20190301
  Receipt Date: 20200709
  Transmission Date: 20201102
  Serious: Yes (Hospitalization, Other)
  Sender: FDA-Public Use
  Company Number: IT-ACCORD-109996

PATIENT
  Age: 20 Year
  Sex: Female

DRUGS (4)
  1. ESTRADIOL/DYDROGESTERONE [Concomitant]
     Active Substance: DYDROGESTERONE\ESTRADIOL
     Dosage: 1 DF, UNK
     Route: 048
  2. OMEPRAZOLE. [Concomitant]
     Active Substance: OMEPRAZOLE
  3. DEPAKIN [Suspect]
     Active Substance: VALPROATE SODIUM
     Indication: MANIA
     Dosage: STRENGTH 500 MG
     Route: 048
     Dates: start: 20180826, end: 20180826
  4. QUETIAPINE. [Suspect]
     Active Substance: QUETIAPINE
     Indication: PERSONALITY DISORDER
     Dosage: 1500 MG, TOTAL
     Route: 048
     Dates: start: 20180826, end: 20180826

REACTIONS (7)
  - Tachycardia [Recovered/Resolved]
  - Sluggishness [Recovered/Resolved]
  - Intentional self-injury [Unknown]
  - Sopor [Recovered/Resolved]
  - Somnolence [Recovered/Resolved]
  - Off label use [Unknown]
  - Drug abuse [Unknown]

NARRATIVE: CASE EVENT DATE: 20180826
